FAERS Safety Report 19955631 (Version 1)
Quarter: 2021Q4

REPORT INFORMATION
  Report Type: Report from Study
  Country: None (occurrence: GB)
  Receive Date: 20211013
  Receipt Date: 20211013
  Transmission Date: 20220303
  Serious: Yes (Other)
  Sender: FDA-Public Use
  Company Number: GB-ABBVIE-21K-167-3871861-00

PATIENT
  Age: 69 Year
  Sex: Female

DRUGS (6)
  1. HUMIRA [Suspect]
     Active Substance: ADALIMUMAB
     Indication: Crohn^s disease
     Route: 058
     Dates: start: 20160728, end: 2021
  2. HUMIRA [Suspect]
     Active Substance: ADALIMUMAB
     Route: 058
  3. INFLUENZA VIRUS VACCINE [Concomitant]
     Active Substance: INFLUENZA VIRUS VACCINE
     Indication: Product used for unknown indication
  4. COVID-19 VACCINE [Concomitant]
     Indication: COVID-19 immunisation
     Dosage: 1ST DOSE
     Route: 030
  5. COVID-19 VACCINE [Concomitant]
     Dosage: 2ND DOSE
     Route: 030
  6. COVID-19 VACCINE [Concomitant]
     Dosage: BOOSTER DOSE
     Route: 030

REACTIONS (16)
  - Haemorrhage [Not Recovered/Not Resolved]
  - Stoma creation [Unknown]
  - Drain placement [Not Recovered/Not Resolved]
  - Fistula [Not Recovered/Not Resolved]
  - Secretion discharge [Not Recovered/Not Resolved]
  - Weight decreased [Not Recovered/Not Resolved]
  - Fatigue [Unknown]
  - Plantar fasciitis [Unknown]
  - Device issue [Unknown]
  - Inappropriate schedule of product administration [Unknown]
  - Mood swings [Unknown]
  - Sleep disorder [Not Recovered/Not Resolved]
  - Emotional distress [Unknown]
  - Anxiety [Unknown]
  - Arthralgia [Unknown]
  - Impaired healing [Unknown]

NARRATIVE: CASE EVENT DATE: 20210101
